FAERS Safety Report 13413995 (Version 2)
Quarter: 2017Q2

REPORT INFORMATION
  Report Type: Spontaneous
  Country: FR (occurrence: FR)
  Receive Date: 20170407
  Receipt Date: 20170418
  Transmission Date: 20170830
  Serious: Yes (Other)
  Sender: FDA-Public Use
  Company Number: FR-BAYER-2017-059147

PATIENT
  Age: 73 Year
  Sex: Female

DRUGS (6)
  1. STIVARGA [Suspect]
     Active Substance: REGORAFENIB
     Dosage: 120 MG, QD
  2. STIVARGA [Suspect]
     Active Substance: REGORAFENIB
     Dosage: 160 MG, QD
     Dates: end: 201703
  3. STIVARGA [Suspect]
     Active Substance: REGORAFENIB
     Dosage: 120 MG, QD
  4. STIVARGA [Suspect]
     Active Substance: REGORAFENIB
     Dosage: 160 MG, QD
  5. STIVARGA [Suspect]
     Active Substance: REGORAFENIB
     Dosage: 80 MG, QD
     Dates: start: 201702
  6. STIVARGA [Suspect]
     Active Substance: REGORAFENIB
     Dosage: 120 MG, QD

REACTIONS (10)
  - Alanine aminotransferase increased [None]
  - Cholestasis [None]
  - Blood bilirubin increased [None]
  - Drug-induced liver injury [None]
  - Drug-induced liver injury [None]
  - Dysphonia [None]
  - Gamma-glutamyltransferase increased [None]
  - Mucosal inflammation [None]
  - Aspartate aminotransferase increased [None]
  - Blood alkaline phosphatase increased [None]

NARRATIVE: CASE EVENT DATE: 201702
